FAERS Safety Report 9182221 (Version 2)
Quarter: 2013Q2

REPORT INFORMATION
  Report Type: Spontaneous
  Country: US (occurrence: US)
  Receive Date: 20130322
  Receipt Date: 20130430
  Transmission Date: 20140414
  Serious: Yes (Hospitalization, Other)
  Sender: FDA-Public Use
  Company Number: US-ABBOTT-13P-163-1063924-00

PATIENT
  Age: 49 Year
  Sex: Male

DRUGS (9)
  1. DEPAKOTE [Suspect]
     Indication: MENTAL DISORDER
     Route: 048
  2. DEPAKOTE [Suspect]
     Dosage: 500MG AM, 500MG NOON, 1000MG HS
     Dates: end: 201210
  3. DEPAKOTE [Suspect]
  4. CLOZARIL [Suspect]
     Indication: PRODUCT USED FOR UNKNOWN INDICATION
     Dosage: IN THE MORNING
     Route: 048
  5. CLOZARIL [Suspect]
     Dosage: AT BEDTIME
     Route: 048
  6. ZYPREXA [Concomitant]
     Indication: PRODUCT USED FOR UNKNOWN INDICATION
     Route: 048
  7. ASPIRIN [Concomitant]
     Indication: PRODUCT USED FOR UNKNOWN INDICATION
  8. FAZACLO [Concomitant]
     Indication: PRODUCT USED FOR UNKNOWN INDICATION
  9. UNKNOWN MEDICATION [Concomitant]
     Indication: PRODUCT USED FOR UNKNOWN INDICATION
     Dosage: HS
     Route: 048

REACTIONS (6)
  - Convulsion [Unknown]
  - Drug prescribing error [Unknown]
  - Suicidal ideation [Recovered/Resolved]
  - Rhabdomyolysis [Recovered/Resolved]
  - Psychiatric decompensation [Unknown]
  - Intentional self-injury [Unknown]
